FAERS Safety Report 24396814 (Version 1)
Quarter: 2024Q4

REPORT INFORMATION
  Report Type: Spontaneous
  Country: EG (occurrence: EG)
  Receive Date: 20241004
  Receipt Date: 20241004
  Transmission Date: 20250114
  Serious: Yes (Other)
  Sender: ELI LILLY AND CO
  Company Number: EG-ELI_LILLY_AND_COMPANY-EG202409014860

PATIENT
  Age: 45 Year
  Sex: Female
  Weight: 84 kg

DRUGS (2)
  1. GEMZAR [Suspect]
     Active Substance: GEMCITABINE HYDROCHLORIDE
     Indication: Ovarian cancer metastatic
     Dosage: UNK UNK, UNKNOWN
     Route: 042
     Dates: start: 20240826
  2. PLATINOL [Concomitant]
     Active Substance: CISPLATIN
     Indication: Product used for unknown indication

REACTIONS (2)
  - Urticaria [Recovered/Resolved]
  - Wheezing [Recovered/Resolved]
